FAERS Safety Report 9420431 (Version 1)
Quarter: 2013Q3

REPORT INFORMATION
  Report Type: Spontaneous
  Country: US (occurrence: US)
  Receive Date: 20130725
  Receipt Date: 20130725
  Transmission Date: 20140515
  Serious: No
  Sender: FDA-Public Use
  Company Number: US-ABBOTT-13P-163-1082052-00

PATIENT
  Age: 63 Year
  Sex: Female
  Weight: 56.75 kg

DRUGS (6)
  1. SYNTHROID [Suspect]
     Indication: HYPOTHYROIDISM
     Dosage: 10 PILLS PER WEEK
     Dates: start: 1980, end: 201303
  2. SYNTHROID [Suspect]
     Dosage: 11 PILLS PER WEEK
     Dates: start: 201303, end: 20130421
  3. SYNTHROID [Suspect]
     Dosage: 13 PILLS PER WEEK
     Dates: start: 20130422
  4. PRILOSEC [Concomitant]
     Indication: GASTROOESOPHAGEAL REFLUX DISEASE
     Dates: end: 201303
  5. PROBIOTIC [Concomitant]
     Indication: PRODUCT USED FOR UNKNOWN INDICATION
  6. CLONOPIN [Concomitant]
     Indication: ANXIETY

REACTIONS (7)
  - Product quality issue [Unknown]
  - Blood thyroid stimulating hormone increased [Not Recovered/Not Resolved]
  - Fatigue [Not Recovered/Not Resolved]
  - Muscular weakness [Not Recovered/Not Resolved]
  - Muscle spasms [Unknown]
  - Anxiety [Unknown]
  - Headache [Unknown]
